FAERS Safety Report 8590538-8 (Version None)
Quarter: 2012Q3

REPORT INFORMATION
  Report Type: 
  Country: None (occurrence: None)
  Receive Date: 20120813
  Receipt Date: 20120809
  Transmission Date: 20120928
  Serious: Yes (Disabling, Other)
  Sender: FDA-Public Use
  Company Number: US-PFIZER INC-2012186156

PATIENT
  Age: 46 Year
  Sex: Female
  Weight: 53.52 kg

DRUGS (5)
  1. NEXIUM [Concomitant]
     Dosage: UNK
  2. CELEBREX [Suspect]
     Indication: MYALGIA
  3. MELATONIN [Concomitant]
     Indication: INSOMNIA
     Dosage: 3 MG, UNK
  4. CELEBREX [Suspect]
     Indication: PAIN IN EXTREMITY
     Dosage: 200 MG, 2X/DAY
     Dates: start: 19990101
  5. CELEBREX [Suspect]
     Indication: MUSCLE SPASMS

REACTIONS (13)
  - MUSCULOSKELETAL DISORDER [None]
  - LACRIMAL DISORDER [None]
  - SKIN CANCER [None]
  - OESOPHAGEAL CARCINOMA [None]
  - GRAND MAL CONVULSION [None]
  - SALIVARY GLAND DISORDER [None]
  - BONE NEOPLASM MALIGNANT [None]
  - PAIN IN EXTREMITY [None]
  - TOOTH DISORDER [None]
  - BRAIN CANCER METASTATIC [None]
  - HYPOAESTHESIA [None]
  - HYPERSENSITIVITY [None]
  - BALANCE DISORDER [None]
